FAERS Safety Report 8185170-4 (Version None)
Quarter: 2012Q1

REPORT INFORMATION
  Report Type: 
  Country: None (occurrence: None)
  Receive Date: 20120305
  Receipt Date: 20120228
  Transmission Date: 20120608
  Serious: Yes (Hospitalization, Other)
  Sender: FDA-Public Use
  Company Number: US-ACTELION PHARMACEUTICALS LTD-A-US2012-61216

PATIENT

DRUGS (3)
  1. ADCIRCA [Concomitant]
  2. TRACLEER [Suspect]
     Indication: PULMONARY ARTERIAL HYPERTENSION
     Dosage: UNK
     Route: 048
     Dates: start: 20020905, end: 20120201
  3. COUMADIN [Concomitant]

REACTIONS (2)
  - LUNG TRANSPLANT [None]
  - CARDIAC FAILURE CONGESTIVE [None]
